FAERS Safety Report 6862872-0 (Version None)
Quarter: 2010Q3

REPORT INFORMATION
  Report Type: 
  Country: None (occurrence: None)
  Receive Date: 20100721
  Receipt Date: 20100712
  Transmission Date: 20110219
  Serious: Yes (Other)
  Sender: FDA-Public Use
  Company Number: A0871269A

PATIENT
  Sex: Male
  Weight: 90.9 kg

DRUGS (16)
  1. PAXIL [Suspect]
     Indication: PRODUCT USED FOR UNKNOWN INDICATION
  2. NEURONTIN [Suspect]
     Indication: PRODUCT USED FOR UNKNOWN INDICATION
     Dosage: 1500MG PER DAY
  3. CHANTIX [Suspect]
     Dosage: .5MG TWICE PER DAY
     Dates: start: 20090523
  4. CYMBALTA [Suspect]
     Indication: PRODUCT USED FOR UNKNOWN INDICATION
  5. DIOVAN [Concomitant]
  6. NEXIUM [Concomitant]
  7. TOPROL-XL [Concomitant]
  8. DURAGESIC-100 [Concomitant]
  9. LORCET-HD [Concomitant]
  10. VALIUM [Concomitant]
  11. ALBUTEROL [Concomitant]
  12. COLACE [Concomitant]
  13. VITAMIN C [Concomitant]
  14. VITAMIN E [Concomitant]
  15. FOLIC ACID [Concomitant]
  16. CALCIUM [Concomitant]

REACTIONS (9)
  - CONVULSION [None]
  - EXCORIATION [None]
  - FALL [None]
  - FOOT FRACTURE [None]
  - INSOMNIA [None]
  - LACERATION [None]
  - LOWER LIMB FRACTURE [None]
  - RIB FRACTURE [None]
  - TREMOR [None]
